FAERS Safety Report 8249038-7 (Version None)
Quarter: 2012Q2

REPORT INFORMATION
  Report Type: 
  Country: None (occurrence: None)
  Receive Date: 20120402
  Receipt Date: 20120323
  Transmission Date: 20120825
  Serious: Yes (Hospitalization)
  Sender: FDA-Public Use
  Company Number: US-BIOGENIDEC-2012BI007424

PATIENT
  Age: 48 Year
  Sex: Female

DRUGS (8)
  1. AMBIEN [Concomitant]
  2. ZOFRAN [Concomitant]
  3. BACLOFEN [Concomitant]
  4. AVONEX [Concomitant]
     Indication: MULTIPLE SCLEROSIS
     Route: 030
  5. CELEBREX [Concomitant]
  6. ZOLOFT [Concomitant]
  7. TYSABRI [Suspect]
     Indication: MULTIPLE SCLEROSIS
     Route: 042
     Dates: start: 20070103
  8. LANSOPRAZOLE [Concomitant]

REACTIONS (8)
  - BLOOD POTASSIUM DECREASED [None]
  - INFLUENZA LIKE ILLNESS [None]
  - ANXIETY [None]
  - VOMITING [None]
  - PALPITATIONS [None]
  - MULTIPLE SCLEROSIS RELAPSE [None]
  - ASTHENIA [None]
  - UHTHOFF'S PHENOMENON [None]
